FAERS Safety Report 6701619-5 (Version None)
Quarter: 2010Q2

REPORT INFORMATION
  Report Type: 
  Country: None (occurrence: None)
  Receive Date: 20100429
  Receipt Date: 20100420
  Transmission Date: 20101027
  Serious: Yes (Hospitalization)
  Sender: FDA-Public Use
  Company Number: US-MYLANLABS-2010S1006755

PATIENT
  Sex: Female

DRUGS (1)
  1. FENTANYL CITRATE [Suspect]

REACTIONS (1)
  - CEREBROVASCULAR ACCIDENT [None]
